FAERS Safety Report 23019807 (Version 1)
Quarter: 2023Q4

REPORT INFORMATION
  Report Type: Spontaneous
  Country: US (occurrence: None)
  Receive Date: 20231002
  Receipt Date: 20231002
  Transmission Date: 20240109
  Serious: No
  Sender: FDA-Public Use
  Company Number: None

PATIENT
  Age: 64 Year
  Sex: Female
  Weight: 65.25 kg

DRUGS (5)
  1. METHYLPREDNISOLONE [Suspect]
     Active Substance: METHYLPREDNISOLONE
     Indication: Dental operation
     Dates: start: 20230921, end: 20230928
  2. METHYLPREDNISOLONE [Suspect]
     Active Substance: METHYLPREDNISOLONE
     Indication: Dental implantation
  3. SYNTHROID [Concomitant]
     Active Substance: LEVOTHYROXINE SODIUM
  4. VITAMIN D [Concomitant]
     Active Substance: VITAMIN D NOS
  5. CALCIUM [Concomitant]
     Active Substance: CALCIUM

REACTIONS (16)
  - Chest discomfort [None]
  - Dyspnoea [None]
  - Suffocation feeling [None]
  - Cough [None]
  - Gastrooesophageal reflux disease [None]
  - Eructation [None]
  - Chest pain [None]
  - Gastrointestinal sounds abnormal [None]
  - Abdominal discomfort [None]
  - Gastrointestinal pain [None]
  - Asthenia [None]
  - Depressed mood [None]
  - Depression [None]
  - Dyspepsia [None]
  - Flatulence [None]
  - Dyspepsia [None]

NARRATIVE: CASE EVENT DATE: 20230930
